FAERS Safety Report 10108860 (Version 1)
Quarter: 2014Q2

REPORT INFORMATION
  Report Type: Report from Study
  Country: DE (occurrence: DE)
  Receive Date: 20140425
  Receipt Date: 20140425
  Transmission Date: 20141212
  Serious: Yes (Other)
  Sender: FDA-Public Use
  Company Number: DE-BAYER-2014-056697

PATIENT
  Age: 64 Year
  Sex: Female

DRUGS (1)
  1. BETAFERON [Suspect]
     Indication: MULTIPLE SCLEROSIS
     Dosage: 250 ?G, QOD
     Route: 058
     Dates: start: 20041122, end: 20140201

REACTIONS (3)
  - Paralysis [Not Recovered/Not Resolved]
  - Vertigo [Not Recovered/Not Resolved]
  - Vomiting [Not Recovered/Not Resolved]
